FAERS Safety Report 9330166 (Version 2)
Quarter: 2013Q3

REPORT INFORMATION
  Report Type: Spontaneous
  Country: IT (occurrence: IT)
  Receive Date: 20130604
  Receipt Date: 20130731
  Transmission Date: 20140515
  Serious: Yes (Other)
  Sender: FDA-Public Use
  Company Number: IT-PFIZER INC-2013168353

PATIENT
  Age: 46 Year
  Sex: Male

DRUGS (4)
  1. TORVAST [Suspect]
     Dosage: 80 MG, DAILY
     Route: 048
     Dates: start: 20130301, end: 20130502
  2. EFFIENT [Concomitant]
     Dosage: 10 MG
     Route: 048
  3. CONGESCOR [Concomitant]
     Dosage: 1.25 MG
     Route: 048
  4. PANTORC [Concomitant]
     Indication: PROPHYLAXIS AGAINST GASTROINTESTINAL ULCER
     Dosage: 20 MG
     Route: 048

REACTIONS (3)
  - Dysuria [Recovering/Resolving]
  - Erythema [Recovering/Resolving]
  - Pruritus [Recovering/Resolving]
